FAERS Safety Report 24776651 (Version 1)
Quarter: 2024Q4

REPORT INFORMATION
  Report Type: Spontaneous
  Country: FR (occurrence: FR)
  Receive Date: 20241226
  Receipt Date: 20241226
  Transmission Date: 20250114
  Serious: Yes (Hospitalization, Other)
  Sender: CELLTRION
  Company Number: None

PATIENT

DRUGS (1)
  1. RITUXIMAB [Suspect]
     Active Substance: RITUXIMAB
     Indication: Urticarial vasculitis
     Dosage: 1 DF, EVERY 6 MONTHS
     Route: 042
     Dates: start: 20200304, end: 20230920

REACTIONS (4)
  - Cystitis interstitial [Recovering/Resolving]
  - Hypogammaglobulinaemia [Not Recovered/Not Resolved]
  - Escherichia pyelonephritis [Recovering/Resolving]
  - Intentional product use issue [Unknown]

NARRATIVE: CASE EVENT DATE: 20240315
